FAERS Safety Report 23302600 (Version 1)
Quarter: 2023Q4

REPORT INFORMATION
  Report Type: Spontaneous
  Country: CA (occurrence: CA)
  Receive Date: 20231215
  Receipt Date: 20231215
  Transmission Date: 20240110
  Serious: Yes (Other)
  Sender: FDA-Public Use
  Company Number: CA-PFIZER INC-202300434721

PATIENT
  Age: 21 Year
  Sex: Male
  Weight: 76 kg

DRUGS (2)
  1. METHOTREXATE SODIUM [Suspect]
     Active Substance: METHOTREXATE SODIUM
     Indication: Crohn^s disease
     Dosage: 1 DF
     Dates: start: 2016
  2. PREDNISONE [Concomitant]
     Active Substance: PREDNISONE
     Dosage: UNK, ON AND OFF SINCE DIAGNOSIS

REACTIONS (3)
  - Liver injury [Not Recovered/Not Resolved]
  - Hepatic enzyme abnormal [Unknown]
  - Off label use [Unknown]
